FAERS Safety Report 20169682 (Version 1)
Quarter: 2021Q4

REPORT INFORMATION
  Report Type: Spontaneous
  Country: CN (occurrence: CN)
  Receive Date: 20211210
  Receipt Date: 20211210
  Transmission Date: 20220304
  Serious: Yes (Hospitalization, Other)
  Sender: FDA-Public Use
  Company Number: CN-009507513-2112CHN001695

PATIENT
  Age: 66 Year
  Sex: Male

DRUGS (4)
  1. INVANZ [Suspect]
     Active Substance: ERTAPENEM SODIUM
     Indication: Oesophageal carcinoma
     Dosage: 1 G, ONCE A DAY (QD); STRENGTH:INJECION
     Route: 041
     Dates: start: 20210125, end: 20210206
  2. INVANZ [Suspect]
     Active Substance: ERTAPENEM SODIUM
     Indication: Pneumonitis
  3. OMEPRAZOLE SODIUM [Concomitant]
     Active Substance: OMEPRAZOLE SODIUM
     Indication: Anti-infective therapy
     Dosage: 40 ML, ONCE A DAY (QD)
     Route: 041
     Dates: start: 20210125, end: 20210208
  4. OMEPRAZOLE SODIUM [Concomitant]
     Active Substance: OMEPRAZOLE SODIUM
     Indication: Prophylaxis

REACTIONS (1)
  - Myelosuppression [Recovering/Resolving]

NARRATIVE: CASE EVENT DATE: 20210205
